FAERS Safety Report 5677734-4 (Version None)
Quarter: 2008Q1

REPORT INFORMATION
  Report Type: 
  Country: None (occurrence: None)
  Receive Date: 20080324
  Receipt Date: 20070404
  Transmission Date: 20080703
  Serious: No
  Sender: FDA-Public Use
  Company Number: US-ABBOTT-07P-163-0364307-00

PATIENT
  Sex: Female
  Weight: 81.72 kg

DRUGS (2)
  1. BIAXIN XL [Suspect]
     Indication: SINUSITIS
     Route: 048
     Dates: start: 20070402
  2. BIAXIN XL [Suspect]
     Indication: EAR INFECTION

REACTIONS (2)
  - MUSCLE SPASMS [None]
  - PAIN [None]
